FAERS Safety Report 20374838 (Version 1)
Quarter: 2022Q1

REPORT INFORMATION
  Report Type: Spontaneous
  Country: US (occurrence: None)
  Receive Date: 20220125
  Receipt Date: 20220125
  Transmission Date: 20220423
  Serious: Yes (Hospitalization)
  Sender: FDA-Public Use
  Company Number: None

PATIENT
  Age: 0 Year
  Sex: Female

DRUGS (10)
  1. SILDENAFIL [Suspect]
     Active Substance: SILDENAFIL
     Indication: Pulmonary arterial hypertension
     Dosage: FREQUENCY : AS DIRECTED;?
     Route: 048
  2. ALBUTEROL [Concomitant]
     Active Substance: ALBUTEROL
  3. FAMOTIDINE INJ [Concomitant]
  4. FUROSEMIDE SOL [Concomitant]
  5. FUROSEMIDE SOL [Concomitant]
  6. GLYCERIN SUP [Concomitant]
  7. LOVENOX INJ [Concomitant]
  8. MULTIVITAMIN CHW [Concomitant]
  9. IRON [Concomitant]
     Active Substance: IRON
  10. SODIUM CHLORIDE [Concomitant]
     Active Substance: SODIUM CHLORIDE

REACTIONS (2)
  - Respiratory tract malformation [None]
  - Newborn persistent pulmonary hypertension [None]

NARRATIVE: CASE EVENT DATE: 20210928
